FAERS Safety Report 11716389 (Version 2)
Quarter: 2015Q4

REPORT INFORMATION
  Report Type: Spontaneous
  Country: US (occurrence: US)
  Receive Date: 20151104
  Receipt Date: 20151110
  Transmission Date: 20160304
  Serious: No
  Sender: FDA-Public Use
  Company Number: US-ELI_LILLY_AND_COMPANY-US201109000038

PATIENT
  Age: 66 Year
  Sex: Female

DRUGS (7)
  1. FORTEO [Suspect]
     Active Substance: TERIPARATIDE
     Indication: OSTEOPOROSIS
     Dosage: 20 UG, QD
     Route: 065
     Dates: start: 20110707
  2. FORTEO [Suspect]
     Active Substance: TERIPARATIDE
     Dosage: 20 UG, QD
  3. FORTEO [Suspect]
     Active Substance: TERIPARATIDE
     Dosage: 20 UG, QD
  4. FORTEO [Suspect]
     Active Substance: TERIPARATIDE
     Dosage: 20 UG, QD
     Route: 065
  5. FORTEO [Suspect]
     Active Substance: TERIPARATIDE
     Dosage: 20 UG, QD
  6. FORTEO [Suspect]
     Active Substance: TERIPARATIDE
     Dosage: 20 UG, QD
  7. FORTEO [Suspect]
     Active Substance: TERIPARATIDE
     Dosage: 20 UG, QD

REACTIONS (12)
  - Gingival pain [Not Recovered/Not Resolved]
  - Constipation [Unknown]
  - Gingival bleeding [Unknown]
  - Fatigue [Not Recovered/Not Resolved]
  - Mental disorder [Not Recovered/Not Resolved]
  - Amnesia [Recovering/Resolving]
  - Dizziness [Not Recovered/Not Resolved]
  - Pain [Unknown]
  - Noninfective gingivitis [Unknown]
  - Gingival swelling [Unknown]
  - Pain in extremity [Not Recovered/Not Resolved]
  - Lethargy [Unknown]

NARRATIVE: CASE EVENT DATE: 201112
